FAERS Safety Report 4524247-9 (Version None)
Quarter: 2004Q4

REPORT INFORMATION
  Report Type: 
  Country: None (occurrence: None)
  Receive Date: 20041119
  Receipt Date: 20040928
  Transmission Date: 20050328
  Serious: No
  Sender: FDA-Public Use
  Company Number: PHEH2004US10428

PATIENT
  Sex: Female

DRUGS (1)
  1. ZELNORM [Suspect]

REACTIONS (4)
  - FEELING HOT [None]
  - HYPOAESTHESIA [None]
  - PARAESTHESIA [None]
  - PERIPHERAL COLDNESS [None]
